FAERS Safety Report 9219946 (Version 1)
Quarter: 2013Q2

REPORT INFORMATION
  Report Type: Spontaneous
  Country: IT (occurrence: IT)
  Receive Date: 20130409
  Receipt Date: 20130409
  Transmission Date: 20140414
  Serious: Yes (Hospitalization)
  Sender: FDA-Public Use
  Company Number: PHHY2013IT033326

PATIENT
  Sex: Female

DRUGS (4)
  1. VOLTAREN [Suspect]
     Indication: INTENTIONAL SELF-INJURY
     Dosage: 30 DF (30 POSOLOGIC UNIT)
     Route: 048
     Dates: start: 20130326, end: 20130326
  2. RILATEN [Suspect]
     Indication: INTENTIONAL SELF-INJURY
     Dosage: 10 MG
     Route: 048
     Dates: start: 20130326, end: 20130326
  3. ZERINOL [Suspect]
     Indication: INTENTIONAL SELF-INJURY
     Dosage: 30 DF
     Route: 048
     Dates: start: 20130326, end: 20130326
  4. VALIUM [Suspect]
     Indication: INTENTIONAL SELF-INJURY
     Dosage: 20 ML
     Route: 048
     Dates: start: 20130326, end: 20130326

REACTIONS (2)
  - Intentional self-injury [Recovered/Resolved]
  - Somnolence [Recovered/Resolved]
